FAERS Safety Report 5362319-X (Version None)
Quarter: 2007Q2

REPORT INFORMATION
  Report Type: 
  Country: None (occurrence: None)
  Receive Date: 20070619
  Receipt Date: 20070606
  Transmission Date: 20071010
  Serious: Yes (Life-Threatening, Other)
  Sender: FDA-Public Use
  Company Number: B0475078A

PATIENT
  Age: 57 Year
  Sex: Female
  Weight: 70 kg

DRUGS (3)
  1. FLOXACILLIN SODIUM [Suspect]
     Route: 048
     Dates: start: 20070510, end: 20070510
  2. PENICILLIN [Suspect]
     Route: 048
     Dates: start: 20070510, end: 20070510
  3. LEVOTHYROXINE SODIUM [Concomitant]
     Indication: HYPOTHYROIDISM
     Route: 048
     Dates: start: 20061212

REACTIONS (1)
  - ANAPHYLACTIC REACTION [None]
